FAERS Safety Report 4677276-9 (Version None)
Quarter: 2005Q2

REPORT INFORMATION
  Report Type: 
  Country: None (occurrence: None)
  Receive Date: 20050526
  Receipt Date: 20050517
  Transmission Date: 20051028
  Serious: Yes (Life-Threatening, Hospitalization, Other)
  Sender: FDA-Public Use
  Company Number: JP-2005-008408

PATIENT
  Age: 52 Year
  Sex: Male

DRUGS (3)
  1. SOTALOL HCL [Suspect]
     Indication: CONGESTIVE CARDIOMYOPATHY
     Dosage: 80 MG, 2X/DAY, ORAL
     Route: 048
     Dates: start: 20050324, end: 20050326
  2. CARVEDILOL [Concomitant]
  3. ENALAPRIL MALEATE [Concomitant]

REACTIONS (6)
  - BLOOD PRESSURE DECREASED [None]
  - CARDIAC FAILURE CONGESTIVE [None]
  - CONDITION AGGRAVATED [None]
  - FALL [None]
  - OLIGURIA [None]
  - TREATMENT NONCOMPLIANCE [None]
